FAERS Safety Report 7929532 (Version 5)
Quarter: 2013Q3

REPORT INFORMATION
  Report Type: Spontaneous
  Country: GB (occurrence: None)
  Receive Date: 20110408
  Receipt Date: 20130820
  Transmission Date: 20140515
  Serious: Yes (Death, Other)
  Sender: FDA-Public Use
  Company Number: AUR-APL-2011-01090

PATIENT
  Age: 89 Year
  Sex: Female

DRUGS (17)
  1. RISPERIDONE [Suspect]
     Indication: PARKINSON^S DISEASE
     Dosage: ORAL
     Route: 048
  2. ROPINIROLE [Suspect]
     Indication: PARKINSON^S DISEASE
     Dosage: 9 MG (9 MG, 1 IN 1 D), ORAL
     Route: 048
  3. ASPIRIN (ACETYLSALICYLIC ACID) [Concomitant]
     Indication: PARKINSON^S DISEASE
     Dosage: 6 MG, DAILY, ORAL
     Route: 048
  4. BISOPROLOL (BISOPROLOL) [Concomitant]
  5. CARBIDOPA (CARBIDOPA) [Concomitant]
  6. CARBIMAZOLE (CARBIMAZOLE) [Concomitant]
  7. DIGOXIN (DIGOXIN) [Concomitant]
  8. FORTISIP [Concomitant]
  9. FUROSEMIDE (FUROSEMIDE) [Concomitant]
  10. IRON (IRON) [Concomitant]
  11. LACTULOSE (LACTULOSE) [Concomitant]
  12. LEVODOPA (LEVODOPA) [Concomitant]
  13. SINEMET (SINEMET) [Concomitant]
  14. AMOXICILLIN (AMOXICILLIN) [Concomitant]
  15. SPARTEINE SULPHATE (SPARTEINE SULFATE) [Concomitant]
  16. AMOXICILLIN TRIHYDRATE (AMOXICILLIN TRIHYDRATE) [Concomitant]
  17. SINEMET-CR (SINEMET) [Concomitant]

REACTIONS (3)
  - Wrong drug administered [None]
  - Off label use [None]
  - Medication error [None]
